FAERS Safety Report 20726511 (Version 1)
Quarter: 2022Q2

REPORT INFORMATION
  Report Type: Spontaneous
  Country: IN (occurrence: IN)
  Receive Date: 20220419
  Receipt Date: 20220419
  Transmission Date: 20220721
  Serious: Yes (Life-Threatening, Hospitalization)
  Sender: FDA-Public Use
  Company Number: IN-MYLANLABS-2022M1028620

PATIENT
  Age: 62 Year
  Sex: Male

DRUGS (11)
  1. AMPHOTERICIN B [Suspect]
     Active Substance: AMPHOTERICIN B
     Indication: Fungal infection
     Dosage: UNK
     Route: 065
  2. CASPOFUNGIN [Suspect]
     Active Substance: CASPOFUNGIN
     Indication: Fungal infection
     Dosage: UNK
     Route: 065
  3. VANCOMYCIN [Suspect]
     Active Substance: VANCOMYCIN
     Indication: Fungal infection
     Dosage: UNK
     Route: 042
  4. VANCOMYCIN [Suspect]
     Active Substance: VANCOMYCIN
     Indication: Staphylococcal infection
  5. VORICONAZOLE [Suspect]
     Active Substance: VORICONAZOLE
     Indication: Fungal infection
     Dosage: 200 MILLIGRAM, BID
     Route: 042
  6. ITRACONAZOLE [Suspect]
     Active Substance: ITRACONAZOLE
     Indication: Fungal infection
     Dosage: UNK
     Route: 065
  7. POSACONAZOLE [Suspect]
     Active Substance: POSACONAZOLE
     Indication: Fungal infection
     Dosage: UNK
     Route: 065
  8. ANIDULAFUNGIN [Suspect]
     Active Substance: ANIDULAFUNGIN
     Indication: Fungal infection
     Dosage: UNK
     Route: 065
  9. MICAFUNGIN [Suspect]
     Active Substance: MICAFUNGIN
     Indication: Fungal infection
     Dosage: UNK
     Route: 065
  10. CEFTRIAXONE [Suspect]
     Active Substance: CEFTRIAXONE
     Indication: Fungal infection
     Dosage: UNK
     Route: 042
  11. CEFTRIAXONE [Suspect]
     Active Substance: CEFTRIAXONE
     Indication: Staphylococcal infection

REACTIONS (1)
  - Drug ineffective [Unknown]
